FAERS Safety Report 24611097 (Version 1)
Quarter: 2024Q4

REPORT INFORMATION
  Report Type: Spontaneous
  Country: US (occurrence: US)
  Receive Date: 20241113
  Receipt Date: 20241113
  Transmission Date: 20250115
  Serious: No
  Sender: Kenvue
  Company Number: US-KENVUE-20241000018

PATIENT
  Age: 71 Year
  Sex: Female

DRUGS (1)
  1. MENS ROGAINE EXTRA STRENGTH [Suspect]
     Active Substance: MINOXIDIL
     Indication: Alopecia
     Dosage: UNK UNK, TWICE A DAY
     Route: 061
     Dates: start: 202409

REACTIONS (5)
  - Application site dryness [Recovering/Resolving]
  - Product use issue [Unknown]
  - Application site discolouration [Recovering/Resolving]
  - Intentional product misuse [Unknown]
  - Expired product administered [Unknown]

NARRATIVE: CASE EVENT DATE: 20240901
